FAERS Safety Report 5823752-2 (Version None)
Quarter: 2008Q3

REPORT INFORMATION
  Report Type: 
  Country: None (occurrence: None)
  Receive Date: 20080725
  Receipt Date: 20080714
  Transmission Date: 20090109
  Serious: Yes (Other)
  Sender: FDA-Public Use
  Company Number: BR-PFIZER INC-2008059117

PATIENT
  Sex: Male

DRUGS (2)
  1. FLUCONAZOLE [Suspect]
     Indication: CANDIDIASIS
  2. CHEMOTHERAPY NOS [Concomitant]
     Route: 065

REACTIONS (3)
  - ERECTILE DYSFUNCTION [None]
  - HYPOGONADISM [None]
  - LIBIDO DECREASED [None]
